FAERS Safety Report 15288974 (Version 1)
Quarter: 2018Q3

REPORT INFORMATION
  Report Type: Spontaneous
  Country: ES (occurrence: ES)
  Receive Date: 20180817
  Receipt Date: 20180817
  Transmission Date: 20181010
  Serious: Yes (Hospitalization)
  Sender: FDA-Public Use
  Company Number: ES-ASTELLAS-2018US036244

PATIENT
  Age: 27 Year
  Sex: Female

DRUGS (4)
  1. ECULIZUMAB [Suspect]
     Active Substance: ECULIZUMAB
     Indication: INTESTINAL TRANSPLANT
     Dosage: UNK UNK, UNKNOWN FREQ.
     Route: 065
  2. ECULIZUMAB [Suspect]
     Active Substance: ECULIZUMAB
     Indication: RENAL TRANSPLANT
  3. TACROLIMUS. [Suspect]
     Active Substance: TACROLIMUS
     Indication: RENAL TRANSPLANT
  4. TACROLIMUS. [Suspect]
     Active Substance: TACROLIMUS
     Indication: INTESTINAL TRANSPLANT
     Dosage: UNK UNK, UNKNOWN FREQ.
     Route: 065

REACTIONS (9)
  - Central-alveolar hypoventilation [Recovered/Resolved]
  - Pleural effusion [Unknown]
  - Product use in unapproved indication [Unknown]
  - Sleep apnoea syndrome [Recovered/Resolved]
  - JC virus infection [Recovered/Resolved]
  - Respiratory tract infection [Unknown]
  - Acidosis [Unknown]
  - Cardiac failure [Unknown]
  - Progressive multifocal leukoencephalopathy [Recovered/Resolved]
